FAERS Safety Report 4969755-1 (Version None)
Quarter: 2006Q2

REPORT INFORMATION
  Report Type: 
  Country: None (occurrence: None)
  Receive Date: 20060411
  Receipt Date: 20050218
  Transmission Date: 20061013
  Serious: Yes (Hospitalization)
  Sender: FDA-Public Use
  Company Number: US-MERCK-0502USA02924

PATIENT
  Age: 42 Year
  Sex: Female
  Weight: 76 kg

DRUGS (31)
  1. VIOXX [Suspect]
     Indication: ARTHRALGIA
     Route: 048
     Dates: start: 20001015, end: 20041027
  2. VIOXX [Suspect]
     Route: 048
     Dates: start: 20001015, end: 20041027
  3. VIOXX [Suspect]
     Indication: OSTEOARTHRITIS
     Route: 048
     Dates: start: 20001015, end: 20041027
  4. VIOXX [Suspect]
     Route: 048
     Dates: start: 20001015, end: 20041027
  5. TOPROL-XL [Concomitant]
     Route: 065
  6. DURAGESIC-100 [Concomitant]
     Route: 065
  7. DARVOCET [Concomitant]
     Route: 065
  8. GLUCOPHAGE [Concomitant]
     Route: 065
  9. TYLOX [Concomitant]
     Route: 065
  10. [THERAPY UNSPECIFIED] [Concomitant]
     Route: 065
  11. PHENERGAN TABLETS/SUPPOSITORIES [Concomitant]
     Route: 065
  12. VISTARIL [Concomitant]
     Route: 065
  13. NITROGLYCERIN [Concomitant]
     Route: 065
  14. SYNTHROID [Concomitant]
     Route: 065
  15. TOBRADEX [Concomitant]
     Route: 065
  16. REGLAN [Concomitant]
     Route: 065
  17. CHROMAGEN CAPSULES [Concomitant]
     Route: 065
  18. CIPRO [Concomitant]
     Route: 065
  19. EFFEXOR [Concomitant]
     Route: 065
  20. LEVAQUIN [Concomitant]
     Route: 065
  21. MAXIFEN [Concomitant]
     Route: 065
  22. SEDAPAP TABLETS [Concomitant]
     Route: 065
  23. VERSED [Concomitant]
     Route: 065
  24. DEMEROL [Concomitant]
     Route: 065
  25. MEPERGAN [Concomitant]
     Route: 065
  26. [THERAPY UNSPECIFIED] [Concomitant]
     Route: 065
  27. TRENTAL [Concomitant]
     Route: 065
  28. ACTOS [Concomitant]
     Route: 065
  29. PREVACID [Concomitant]
     Route: 065
  30. FLEXERIL [Concomitant]
     Route: 048
  31. VYTORIN [Concomitant]
     Route: 048

REACTIONS (13)
  - ABDOMINAL PAIN [None]
  - ADVERSE EVENT [None]
  - ANORECTAL DISORDER [None]
  - BLADDER DISORDER [None]
  - CARDIAC DISORDER [None]
  - CARDIOMYOPATHY [None]
  - CHEST PAIN [None]
  - GENERAL SYMPTOM [None]
  - PELVIC PAIN [None]
  - PERIPHERAL VASCULAR DISORDER [None]
  - RECTAL HAEMORRHAGE [None]
  - RESPIRATORY ARREST [None]
  - ROAD TRAFFIC ACCIDENT [None]
